FAERS Safety Report 8662783 (Version 3)
Quarter: 2013Q4

REPORT INFORMATION
  Report Type: Spontaneous
  Country: US (occurrence: US)
  Receive Date: 20120712
  Receipt Date: 20131101
  Transmission Date: 20140711
  Serious: No
  Sender: FDA-Public Use
  Company Number: US-009507513-1207USA000431

PATIENT
  Age: 63 Year
  Sex: Female
  Weight: 58.96 kg

DRUGS (5)
  1. ZIOPTAN [Suspect]
     Indication: GLAUCOMA
     Dosage: UNK
     Route: 047
     Dates: start: 20120701, end: 20120703
  2. COMBIGAN [Concomitant]
  3. ARMOUR THYROID TABLETS [Concomitant]
  4. HYDROCHLOROTHIAZIDE [Concomitant]
  5. ESTRACE [Concomitant]

REACTIONS (4)
  - Ocular hyperaemia [Recovered/Resolved]
  - Eye pain [Recovered/Resolved]
  - Eye pruritus [Recovered/Resolved]
  - Eye irritation [Recovered/Resolved]
